FAERS Safety Report 17036181 (Version 1)
Quarter: 2019Q4

REPORT INFORMATION
  Report Type: Report from Study
  Country: TW (occurrence: TW)
  Receive Date: 20191115
  Receipt Date: 20191115
  Transmission Date: 20200122
  Serious: Yes (Other)
  Sender: FDA-Public Use
  Company Number: TW-ASTRAZENECA-2019SF58971

PATIENT
  Age: 53 Year
  Sex: Male

DRUGS (1)
  1. GEFITINIB. [Suspect]
     Active Substance: GEFITINIB
     Indication: MALIGNANT ASCITES
     Route: 048

REACTIONS (3)
  - Metastases to pleura [Unknown]
  - Drug resistance [Unknown]
  - Malignant neoplasm progression [Unknown]
